FAERS Safety Report 25665420 (Version 4)
Quarter: 2025Q3

REPORT INFORMATION
  Report Type: Spontaneous
  Country: JP (occurrence: JP)
  Receive Date: 20250811
  Receipt Date: 20250925
  Transmission Date: 20251021
  Serious: Yes (Other)
  Sender: ROCHE
  Company Number: JP-CHUGAI-2025025025

PATIENT
  Age: 73 Year
  Sex: Male
  Weight: 65 kg

DRUGS (2)
  1. HEMLIBRA [Suspect]
     Active Substance: EMICIZUMAB-KXWH
     Indication: Acquired haemophilia
     Dosage: UNK, ONCE/WEEK
     Route: 058
     Dates: start: 20250630
  2. HEMLIBRA [Suspect]
     Active Substance: EMICIZUMAB-KXWH
     Route: 058
     Dates: start: 2025

REACTIONS (2)
  - Haemorrhage [Not Recovered/Not Resolved]
  - Activated partial thromboplastin time prolonged [Not Recovered/Not Resolved]

NARRATIVE: CASE EVENT DATE: 20250822
